FAERS Safety Report 4544192-2 (Version None)
Quarter: 2004Q4

REPORT INFORMATION
  Report Type: 
  Country: None (occurrence: None)
  Receive Date: 20041230
  Receipt Date: 20041214
  Transmission Date: 20050328
  Serious: Yes (Hospitalization)
  Sender: FDA-Public Use
  Company Number: 2004BI001556

PATIENT
  Age: 54 Year
  Sex: Male
  Weight: 59.4212 kg

DRUGS (4)
  1. AVONEX [Suspect]
     Indication: MULTIPLE SCLEROSIS
     Dosage: SEE IMAGE
     Dates: start: 20041119, end: 20041201
  2. AVONEX [Suspect]
     Indication: MULTIPLE SCLEROSIS
     Dosage: SEE IMAGE
     Dates: start: 20041201
  3. PROTONIX [Concomitant]
  4. ARICEPT [Concomitant]

REACTIONS (6)
  - BALANCE DISORDER [None]
  - CONSTIPATION [None]
  - COUGH [None]
  - FALL [None]
  - MYALGIA [None]
  - PNEUMONITIS [None]
